FAERS Safety Report 21285514 (Version 3)
Quarter: 2023Q1

REPORT INFORMATION
  Report Type: Report from Study
  Country: HU (occurrence: HU)
  Receive Date: 20220902
  Receipt Date: 20230119
  Transmission Date: 20230418
  Serious: Yes (Hospitalization)
  Sender: FDA-Public Use
  Company Number: HU-ROCHE-3170846

PATIENT
  Age: 67 Year
  Sex: Female
  Weight: 100.7 kg

DRUGS (22)
  1. LENALIDOMIDE [Suspect]
     Active Substance: LENALIDOMIDE
     Indication: Marginal zone lymphoma refractory
     Dosage: ON DAYS 1 TO 21 OF EACH CYCLE FOR CYCLES 1 TO12.?ON 16/JUN/2022, RECEIVED THE MOST RECENT DOSE PRIOR
     Route: 048
     Dates: start: 20211216
  2. LENALIDOMIDE [Suspect]
     Active Substance: LENALIDOMIDE
     Indication: Marginal zone lymphoma refractory
     Dosage: ON DAYS 1 TO 21 OF EACH CYCLE FOR CYCLES 1 TO 12
     Route: 048
  3. LENALIDOMIDE [Suspect]
     Active Substance: LENALIDOMIDE
     Dosage: 15 MILLIGRAM DAILY (DAYS 1 TO 21 OF EACH 28-DAY CYCLE FOR CYCLES 1 TO 12)
     Route: 048
     Dates: start: 20220602, end: 20220617
  4. LENALIDOMIDE [Suspect]
     Active Substance: LENALIDOMIDE
     Dosage: 15 MILLIGRAM DAILY (DAYS 1 TO 21 OF EACH 28-DAY CYCLE FOR CYCLES 1 TO 12)
     Route: 048
     Dates: start: 20220210, end: 20220407
  5. LENALIDOMIDE [Suspect]
     Active Substance: LENALIDOMIDE
     Dosage: 20 MILLIGRAM DAILY (DAYS 1 TO 21 OF EACH 28-DAY CYCLE FOR CYCLES 1 TO 12)
     Route: 048
     Dates: start: 20211216, end: 20220209
  6. LENALIDOMIDE [Suspect]
     Active Substance: LENALIDOMIDE
     Dosage: 15 MILLIGRAM DAILY (DAYS 1 TO 21 OF EACH 28-DAY CYCLE FOR CYCLES 1 TO 12)
     Route: 048
     Dates: start: 20220922
  7. RITUXIMAB [Suspect]
     Active Substance: RITUXIMAB
     Indication: Marginal zone lymphoma refractory
     Dosage: ON DAYS 1, 8,15 AND 22 OF CYCLE 1 AND ON DAY 1 OF CYCLES 2 TO 5?ON 11/MAR/2022, RECEIVED THE MOST RE
     Route: 041
     Dates: start: 20211216
  8. RITUXIMAB [Suspect]
     Active Substance: RITUXIMAB
     Indication: Marginal zone lymphoma refractory
  9. TAFASITAMAB-CXIX [Suspect]
     Active Substance: TAFASITAMAB-CXIX
     Indication: Marginal zone lymphoma refractory
     Dosage: ON DAYS 1, 8, 15 AND 22 OF CYCLES 1 TO 3 AND ON DAYS 1 AND 15 (EVERY SECOND WEEK) OF CYCLES 4 TO 12)
     Route: 042
     Dates: start: 20211216, end: 20220413
  10. TAFASITAMAB-CXIX [Suspect]
     Active Substance: TAFASITAMAB-CXIX
     Indication: Marginal zone lymphoma
     Dosage: BLINDED, INFORMATION WITHHELD
     Route: 042
     Dates: start: 20220714, end: 20220728
  11. TAFASITAMAB-CXIX [Suspect]
     Active Substance: TAFASITAMAB-CXIX
     Dosage: BLINDED, INFORMATION WITHHELD
     Route: 042
     Dates: start: 20220922
  12. TAFASITAMAB-CXIX [Suspect]
     Active Substance: TAFASITAMAB-CXIX
     Dosage: BLINDED, INFORMATION WITHHELD
     Route: 042
     Dates: start: 20220602, end: 20220616
  13. SOLU-MEDROL [Concomitant]
     Active Substance: METHYLPREDNISOLONE SODIUM SUCCINATE
     Dates: start: 20211216
  14. FUROSEMIDE [Concomitant]
     Active Substance: FUROSEMIDE
     Dates: start: 2015
  15. ALLOPURINOL [Concomitant]
     Active Substance: ALLOPURINOL
     Dates: start: 201910
  16. COMIRNATY [Concomitant]
     Active Substance: TOZINAMERAN
     Dates: start: 20210303, end: 20211118
  17. ACETAMINOPHEN [Concomitant]
     Active Substance: ACETAMINOPHEN
     Dates: start: 20211216
  18. CETIRIZINE HYDROCHLORIDE [Concomitant]
     Active Substance: CETIRIZINE HYDROCHLORIDE
     Dates: start: 20211216
  19. METFORMIN [Concomitant]
     Active Substance: METFORMIN HYDROCHLORIDE
     Dates: start: 20220602
  20. SULFAMETHOXAZOLE\TRIMETHOPRIM [Concomitant]
     Active Substance: SULFAMETHOXAZOLE\TRIMETHOPRIM
     Dates: start: 20220520, end: 20220529
  21. ALPRAZOLAM [Concomitant]
     Active Substance: ALPRAZOLAM
     Dates: start: 2019
  22. ACYCLOVIR [Concomitant]
     Active Substance: ACYCLOVIR
     Dates: start: 20211216

REACTIONS (2)
  - Hypogammaglobulinaemia [Recovered/Resolved]
  - COVID-19 pneumonia [Recovered/Resolved]

NARRATIVE: CASE EVENT DATE: 20220623
